FAERS Safety Report 21652273 (Version 1)
Quarter: 2022Q4

REPORT INFORMATION
  Report Type: Spontaneous
  Country: CA (occurrence: CA)
  Receive Date: 20221128
  Receipt Date: 20221128
  Transmission Date: 20230113
  Serious: Yes (Hospitalization)
  Sender: FDA-Public Use
  Company Number: CA-PFIZER INC-202201210085

PATIENT
  Age: 9 Year
  Sex: Female

DRUGS (1)
  1. XELJANZ [Suspect]
     Active Substance: TOFACITINIB CITRATE
     Indication: Juvenile idiopathic arthritis
     Dosage: 3.75 MG, 2X/DAY
     Route: 048
     Dates: start: 20221012

REACTIONS (5)
  - C-reactive protein increased [Unknown]
  - White blood cell count increased [Unknown]
  - Rash [Recovered/Resolved]
  - Off label use [Unknown]
  - Infection [Unknown]

NARRATIVE: CASE EVENT DATE: 20220101
